FAERS Safety Report 8302039-2 (Version None)
Quarter: 2012Q2

REPORT INFORMATION
  Report Type: 
  Country: None (occurrence: None)
  Receive Date: 20120420
  Receipt Date: 20120412
  Transmission Date: 20120825
  Serious: Yes (Hospitalization, Disabling)
  Sender: FDA-Public Use
  Company Number: US-MERCK-1202USA02463

PATIENT
  Age: 50 Year
  Sex: Female

DRUGS (7)
  1. FOSAMAX [Suspect]
     Route: 048
     Dates: start: 20001101
  2. FOSAMAX [Suspect]
     Indication: OSTEOPOROSIS
     Route: 048
     Dates: start: 19981001, end: 20001001
  3. FOSAMAX PLUS D [Suspect]
     Indication: OSTEOPENIA
     Route: 048
     Dates: start: 20070701
  4. NASONEX [Concomitant]
     Route: 055
     Dates: start: 20100728
  5. FOSAMAX [Suspect]
     Indication: OSTEOPENIA
     Route: 048
     Dates: start: 19981001, end: 20001001
  6. FOSAMAX PLUS D [Suspect]
     Indication: OSTEOPOROSIS
     Route: 048
     Dates: start: 20070701
  7. FOSAMAX [Suspect]
     Route: 048
     Dates: start: 20001101

REACTIONS (26)
  - LOW TURNOVER OSTEOPATHY [None]
  - ROTATOR CUFF SYNDROME [None]
  - ATROPHIC VULVOVAGINITIS [None]
  - MUSCULOSKELETAL STIFFNESS [None]
  - DRUG INTOLERANCE [None]
  - PALPITATIONS [None]
  - OSTEOARTHRITIS [None]
  - ARTHRALGIA [None]
  - FALL [None]
  - DEPRESSION [None]
  - HYPERTENSION [None]
  - ARTHROPATHY [None]
  - FIBROCYSTIC BREAST DISEASE [None]
  - FEMUR FRACTURE [None]
  - ACUTE SINUSITIS [None]
  - GASTROOESOPHAGEAL REFLUX DISEASE [None]
  - DERMATITIS [None]
  - DRUG INEFFECTIVE [None]
  - EXOSTOSIS [None]
  - IMPAIRED HEALING [None]
  - GAIT DISTURBANCE [None]
  - BURSITIS [None]
  - ADVERSE EVENT [None]
  - LOW DENSITY LIPOPROTEIN INCREASED [None]
  - POOR QUALITY SLEEP [None]
  - HYPERCHOLESTEROLAEMIA [None]
